FAERS Safety Report 5465574-0 (Version None)
Quarter: 2007Q3

REPORT INFORMATION
  Report Type: 
  Country: None (occurrence: None)
  Receive Date: 20070924
  Receipt Date: 19980114
  Transmission Date: 20080115
  Serious: Yes (Hospitalization)
  Sender: FDA-Public Use
  Company Number: FR-PFIZER INC-2006121439

PATIENT
  Sex: Female

DRUGS (13)
  1. IRINOTECAN HCL [Suspect]
     Indication: SARCOMA
     Dosage: DAILY DOSE:735MG
     Route: 042
     Dates: start: 19980112, end: 19980112
  2. AMIKLIN [Concomitant]
  3. ATROPINE [Concomitant]
  4. CORTANCYL [Concomitant]
  5. ACETAMINOPHEN [Concomitant]
  6. FORTUM [Concomitant]
  7. LEXOMIL [Concomitant]
  8. MS CONTIN [Concomitant]
  9. OLMIFON [Concomitant]
     Indication: GASTROINTESTINAL DISORDER
  10. POLARAMINE [Concomitant]
  11. PROPACETAMOL HYDROCHLORIDE [Concomitant]
  12. VANCOMYCIN [Concomitant]
  13. VOLTAREN [Concomitant]

REACTIONS (3)
  - HYPOTHERMIA [None]
  - PYREXIA [None]
  - VOMITING [None]
